FAERS Safety Report 5390676-7 (Version None)
Quarter: 2007Q3

REPORT INFORMATION
  Report Type: 
  Country: None (occurrence: None)
  Receive Date: 20070718
  Receipt Date: 20070526
  Transmission Date: 20080115
  Serious: Yes (Other)
  Sender: FDA-Public Use
  Company Number: CA-SHR-CA-2005-000694

PATIENT
  Age: 78 Year
  Sex: Female
  Weight: 55 kg

DRUGS (8)
  1. BETASERON [Suspect]
     Indication: RELAPSING-REMITTING MULTIPLE SCLEROSIS
     Dosage: 8 MIU, EVERY 2D
     Route: 058
     Dates: start: 20001019, end: 20060526
  2. LOSEC                                   /CAN/ [Concomitant]
     Indication: GASTRIC DISORDER
  3. BACLOFEN [Concomitant]
  4. CELEXA [Concomitant]
     Indication: DEPRESSION
  5. NORTRIPTYLINE HCL [Concomitant]
     Indication: DEPRESSION
  6. BOTOX [Concomitant]
  7. AMANTADINE HCL [Concomitant]
     Dates: end: 20040816
  8. CELEBREX [Concomitant]

REACTIONS (7)
  - ANGINA PECTORIS [None]
  - ARTHRITIS [None]
  - ASTHMA [None]
  - CEREBROVASCULAR ACCIDENT [None]
  - MENIERE'S DISEASE [None]
  - MULTIPLE SCLEROSIS [None]
  - PROGRESSIVE MULTIPLE SCLEROSIS [None]
